FAERS Safety Report 8852415 (Version 3)
Quarter: 2013Q3

REPORT INFORMATION
  Report Type: Spontaneous
  Country: CA (occurrence: CA)
  Receive Date: 20121022
  Receipt Date: 20130801
  Transmission Date: 20140515
  Serious: Yes (Hospitalization)
  Sender: FDA-Public Use
  Company Number: CA-B.I. PHARMACEUTICALS,INC./RIDGEFIELD-2012-BP-25998BP

PATIENT
  Sex: Male

DRUGS (3)
  1. MIRAPEX [Suspect]
     Indication: PARKINSON^S DISEASE
     Dates: start: 19981217
  2. PERGOLIDE [Suspect]
     Indication: PARKINSON^S DISEASE
     Dates: start: 199311, end: 19981217
  3. PERGOLIDE [Suspect]

REACTIONS (1)
  - Hypersexuality [Unknown]
